FAERS Safety Report 6269021-0 (Version None)
Quarter: 2009Q3

REPORT INFORMATION
  Report Type: 
  Country: None (occurrence: None)
  Receive Date: 20090715
  Receipt Date: 20090708
  Transmission Date: 20100115
  Serious: Yes (Congenital Anomaly)
  Sender: FDA-Public Use
  Company Number: A0796904A

PATIENT
  Sex: Female
  Weight: 3 kg

DRUGS (3)
  1. LAMICTAL [Suspect]
     Indication: EPILEPSY
  2. KEPPRA [Concomitant]
     Indication: EPILEPSY
  3. ANTIBIOTIC [Concomitant]
     Indication: URINARY TRACT INFECTION
     Dates: start: 20060801

REACTIONS (5)
  - ATRIAL SEPTAL DEFECT [None]
  - CARDIAC MURMUR [None]
  - DRUG EXPOSURE DURING PREGNANCY [None]
  - PRENATAL SCREENING TEST ABNORMAL [None]
  - VENTRICULAR SEPTAL DEFECT [None]
